FAERS Safety Report 9214096 (Version 1)
Quarter: 2013Q2

REPORT INFORMATION
  Report Type: Spontaneous
  Country: US (occurrence: US)
  Receive Date: 20130405
  Receipt Date: 20130405
  Transmission Date: 20140414
  Serious: No
  Sender: FDA-Public Use
  Company Number: US-TEVA-395363USA

PATIENT
  Age: 31 Year
  Sex: Female
  Weight: 77.18 kg

DRUGS (5)
  1. NUVIGIL [Suspect]
     Indication: SOMNOLENCE
     Route: 048
  2. PRILOSEC [Concomitant]
     Dosage: 40 MILLIGRAM DAILY;
     Route: 048
  3. ZYRTEC [Concomitant]
     Dosage: 50 MILLIGRAM DAILY;
     Route: 048
  4. CONTRACEPTIVES NOS [Concomitant]
     Indication: CONTRACEPTION
     Route: 048
  5. UNKNOWN ANXIETY MEDICATION [Concomitant]

REACTIONS (4)
  - Fatigue [Recovered/Resolved]
  - Headache [Not Recovered/Not Resolved]
  - Somnolence [Unknown]
  - Metrorrhagia [Not Recovered/Not Resolved]
